FAERS Safety Report 20617709 (Version 8)
Quarter: 2022Q2

REPORT INFORMATION
  Report Type: Report from Study
  Country: US (occurrence: US)
  Receive Date: 20220321
  Receipt Date: 20220510
  Transmission Date: 20220721
  Serious: Yes (Hospitalization)
  Sender: FDA-Public Use
  Company Number: US-ALKERMES INC.-ALK-2022-001306

PATIENT
  Age: 53 Year
  Sex: Male
  Weight: 90 kg

DRUGS (4)
  1. VIVITROL [Suspect]
     Active Substance: NALTREXONE
     Indication: Alcohol use disorder
     Dosage: 380 MILLIGRAM, QMO
     Route: 030
     Dates: start: 20220224, end: 20220224
  2. BUPRENORPHINE [Suspect]
     Active Substance: BUPRENORPHINE
     Indication: Alcohol use disorder
     Dosage: 2 MILLIGRAM, QD
     Route: 060
     Dates: start: 20220315, end: 20220324
  3. BUPRENORPHINE [Suspect]
     Active Substance: BUPRENORPHINE
     Dosage: 2 MILLIGRAM, QD
     Route: 060
     Dates: start: 20220225, end: 20220301
  4. ERGOCALCIFEROL [Concomitant]
     Active Substance: ERGOCALCIFEROL
     Indication: Vitamin supplementation
     Dosage: 1250 MICROGRAM, QWK
     Route: 048

REACTIONS (1)
  - Alcohol withdrawal syndrome [Recovered/Resolved]

NARRATIVE: CASE EVENT DATE: 20220302
